FAERS Safety Report 4682556-7 (Version None)
Quarter: 2005Q2

REPORT INFORMATION
  Report Type: 
  Country: None (occurrence: None)
  Receive Date: 20050606
  Receipt Date: 20050314
  Transmission Date: 20051028
  Serious: Yes (Hospitalization)
  Sender: FDA-Public Use
  Company Number: US-MERCK-0503USA02977

PATIENT
  Age: 47 Year
  Sex: Female
  Weight: 48 kg

DRUGS (7)
  1. VIOXX [Suspect]
     Indication: PAIN IN EXTREMITY
     Route: 048
     Dates: start: 20000617, end: 20010819
  2. ZOLOFT [Concomitant]
     Route: 065
     Dates: start: 20010312, end: 20011201
  3. CELEBREX [Concomitant]
     Route: 065
  4. METOPROLOL [Concomitant]
     Route: 065
  5. TENEX [Concomitant]
     Route: 065
  6. PROPRANOLOL HYDROCHLORIDE [Concomitant]
     Route: 065
  7. COUMADIN [Concomitant]
     Route: 065

REACTIONS (17)
  - ATRIAL FIBRILLATION [None]
  - CEREBRAL ARTERY OCCLUSION [None]
  - CEREBROVASCULAR ACCIDENT [None]
  - DYSARTHRIA [None]
  - EMOTIONAL DISTRESS [None]
  - FALL [None]
  - GRANULOCYTOPENIA [None]
  - HEART RATE IRREGULAR [None]
  - HEPATIC NEOPLASM [None]
  - HYPERTENSION [None]
  - HYPERTHYROIDISM [None]
  - HYPOTHYROIDISM [None]
  - LUNG INFILTRATION [None]
  - RASH PRURITIC [None]
  - RESPIRATORY FAILURE [None]
  - SEPSIS [None]
  - URINARY TRACT INFECTION FUNGAL [None]
